FAERS Safety Report 19455473 (Version 1)
Quarter: 2021Q2

REPORT INFORMATION
  Report Type: Report from Study
  Country: None (occurrence: UY)
  Receive Date: 20210623
  Receipt Date: 20210623
  Transmission Date: 20210717
  Serious: Yes (Death, Hospitalization)
  Sender: FDA-Public Use
  Company Number: UY-ABBVIE-21K-168-3962009-00

PATIENT
  Age: 67 Year
  Sex: Female

DRUGS (1)
  1. HUMIRA [Suspect]
     Active Substance: ADALIMUMAB
     Indication: RHEUMATOID ARTHRITIS
     Dosage: UNKNOWN
     Route: 058
     Dates: start: 20151214

REACTIONS (5)
  - Chest injury [Unknown]
  - Fall [Unknown]
  - Abdominal injury [Unknown]
  - Cardiac failure [Fatal]
  - Head injury [Unknown]

NARRATIVE: CASE EVENT DATE: 20210612
